FAERS Safety Report 25839210 (Version 1)
Quarter: 2025Q3

REPORT INFORMATION
  Report Type: Spontaneous
  Country: US (occurrence: US)
  Receive Date: 20250924
  Receipt Date: 20250924
  Transmission Date: 20251020
  Serious: Yes (Other)
  Sender: TAKEDA
  Company Number: US-TAKEDA-2025TUS082047

PATIENT
  Age: 68 Year
  Sex: Male
  Weight: 86 kg

DRUGS (13)
  1. TRINTELLIX [Suspect]
     Active Substance: VORTIOXETINE HYDROBROMIDE
     Indication: Depression
  2. TRINTELLIX [Suspect]
     Active Substance: VORTIOXETINE HYDROBROMIDE
  3. TRINTELLIX [Suspect]
     Active Substance: VORTIOXETINE HYDROBROMIDE
     Dosage: 20 MILLIGRAM, QD
  4. REMERON [Concomitant]
     Active Substance: MIRTAZAPINE
  5. VITAMIN B12 [Concomitant]
     Active Substance: CYANOCOBALAMIN
  6. PRAZOSIN [Concomitant]
     Active Substance: PRAZOSIN
  7. TESTOSTERONE [Concomitant]
     Active Substance: TESTOSTERONE
  8. CRESTOR [Concomitant]
     Active Substance: ROSUVASTATIN CALCIUM
  9. LEVOTHYROXINE [Concomitant]
     Active Substance: LEVOTHYROXINE
  10. PROBIOTICS NOS [Concomitant]
     Active Substance: PROBIOTICS NOS
  11. LOSARTAN [Concomitant]
     Active Substance: LOSARTAN
  12. DEXAMETHASONE [Concomitant]
     Active Substance: DEXAMETHASONE
  13. IRON [Concomitant]
     Active Substance: IRON

REACTIONS (7)
  - Suicide attempt [Unknown]
  - Suicidal ideation [Unknown]
  - Endocrine disorder [Unknown]
  - Heart rate increased [Unknown]
  - Body temperature increased [Unknown]
  - Hyperhidrosis [Unknown]
  - Flushing [Unknown]

NARRATIVE: CASE EVENT DATE: 20250709
